FAERS Safety Report 11691154 (Version 3)
Quarter: 2015Q4

REPORT INFORMATION
  Report Type: Spontaneous
  Country: US (occurrence: US)
  Receive Date: 20151102
  Receipt Date: 20151123
  Transmission Date: 20160304
  Serious: Yes (Death, Hospitalization)
  Sender: FDA-Public Use
  Company Number: US-LPDUSPRD-20150839

PATIENT
  Age: 63 Year
  Sex: Male
  Weight: 145 kg

DRUGS (19)
  1. CALCITRIOL. [Concomitant]
     Active Substance: CALCITRIOL
     Dosage: 0.25 MCG DAILY
     Route: 065
  2. HYDROXYCHLOROQUINE [Concomitant]
     Active Substance: HYDROXYCHLOROQUINE
     Dosage: 400 MG (2 TABLETS DAILY)
     Route: 065
  3. DILTIAZEM [Concomitant]
     Active Substance: DILTIAZEM
     Dosage: 120 MG DAILY
     Route: 065
  4. SALINE (FCM) [Suspect]
     Active Substance: SODIUM CHLORIDE
     Dosage: 0.9%, 1 LITER
     Route: 065
  5. K2 (VITAMIN) [Suspect]
     Active Substance: MENAQUINONE 6
     Dosage: NOT PROVIDED
     Route: 065
  6. NATURALYTE DRY PACK [Suspect]
     Active Substance: SODIUM BICARBONATE
     Dosage: NOT PROVIDED
     Route: 065
  7. VENOFER [Suspect]
     Active Substance: IRON SUCROSE
     Dosage: 100 MG
     Route: 040
     Dates: start: 20150729
  8. SERTRALINE [Concomitant]
     Active Substance: SERTRALINE HYDROCHLORIDE
     Dosage: 100 MG DAILY
     Route: 065
  9. AMIODARONE [Concomitant]
     Active Substance: AMIODARONE
     Dosage: 200 MG DAILY
     Route: 065
  10. ALLOPURINOL. [Concomitant]
     Active Substance: ALLOPURINOL
     Dosage: 100 MG DAILY
     Route: 065
  11. TAMSULOSIN [Concomitant]
     Active Substance: TAMSULOSIN
     Dosage: 0.4 (UNSPECIFIED) TWICE DAILY
     Route: 065
  12. OPTIFLUX DIALYZER [Suspect]
     Active Substance: DEVICE
     Dosage: NOT PROVIDED
     Route: 065
  13. COMBISET 8MM PRE-2 VENOUS INJECT SITES ` [Suspect]
     Active Substance: DEVICE
     Dosage: NOT PROVIDED
     Route: 065
  14. OXYCODONE/ACETAMINOPHEN [Concomitant]
     Active Substance: ACETAMINOPHEN\OXYCODONE HYDROCHLORIDE
     Dosage: 1 TABLET EVERY 6 HOURS PRN
     Route: 048
  15. TRAZODONE [Concomitant]
     Active Substance: TRAZODONE HYDROCHLORIDE
     Dosage: 50 MG AT BEDTIME
     Route: 065
  16. ATORVASTATIN [Concomitant]
     Active Substance: ATORVASTATIN
     Dosage: 10 MG DAILY
     Route: 065
  17. GABAPENTIN. [Concomitant]
     Active Substance: GABAPENTIN
     Dosage: 100 MG DAILY
     Route: 065
  18. GRANUFLO [Suspect]
     Active Substance: ACETIC ACID\SODIUM ACETATE
     Dosage: 2251 SK 2.5CA 1 MG 16.5 GALLON
     Route: 065
  19. LEVEMIR [Concomitant]
     Active Substance: INSULIN DETEMIR
     Dosage: 30 UNITS EVERY AM
     Route: 058

REACTIONS (4)
  - Unresponsive to stimuli [Recovered/Resolved]
  - Cardio-respiratory arrest [Recovered/Resolved]
  - Blood pressure decreased [Recovered/Resolved]
  - Cardiac arrest [Fatal]

NARRATIVE: CASE EVENT DATE: 20150805
